FAERS Safety Report 5281063-0 (Version None)
Quarter: 2007Q1

REPORT INFORMATION
  Report Type: 
  Country: None (occurrence: None)
  Receive Date: 20061229
  Receipt Date: 20061026
  Transmission Date: 20070707
  Serious: Yes (Life-Threatening, Hospitalization)
  Sender: FDA-Public Use
  Company Number: 2006UW20646

PATIENT
  Age: 43 Year
  Sex: Male

DRUGS (14)
  1. CRESTOR [Suspect]
     Dosage: 20 MG PO
     Route: 048
  2. CRESTOR [Suspect]
     Dosage: 40 MG PO
     Route: 048
  3. ZETIA [Suspect]
     Dosage: 10 MG PO
     Route: 048
  4. DIGOXIN [Concomitant]
  5. ATENOLOL [Concomitant]
  6. ALLOPURINOL [Concomitant]
  7. CALAN [Concomitant]
  8. LASIX [Concomitant]
  9. LISINOPRIL [Concomitant]
  10. LANTUS [Concomitant]
  11. REGLAN [Concomitant]
  12. AMITRIPTYLINE HCL [Concomitant]
  13. NEURONTIN [Concomitant]
  14. BYETTA [Concomitant]

REACTIONS (1)
  - RHABDOMYOLYSIS [None]
